FAERS Safety Report 5745462-2 (Version None)
Quarter: 2008Q2

REPORT INFORMATION
  Report Type: 
  Country: None (occurrence: None)
  Receive Date: 20080521
  Receipt Date: 20080515
  Transmission Date: 20081010
  Serious: Yes (Congenital Anomaly)
  Sender: FDA-Public Use
  Company Number: DE-SANOFI-SYNTHELABO-A04200800139

PATIENT
  Sex: Female

DRUGS (5)
  1. CARBAMAZEPINE [Concomitant]
     Indication: EPILEPSY
     Dosage: UNK
     Route: 048
     Dates: start: 20000101
  2. PLAVIX [Suspect]
     Indication: CEREBRAL VENOUS THROMBOSIS
     Dosage: UNK
     Route: 048
     Dates: start: 20000101, end: 20080101
  3. VERTIGOHEEL [Concomitant]
     Indication: CARDIOVASCULAR DISORDER
     Dosage: UNK
     Route: 065
  4. EPAQ [Concomitant]
     Indication: ASTHMA
     Dosage: 2X2 PUFFS
     Route: 055
  5. FRAXIPARIN [Concomitant]
     Indication: CEREBRAL VENOUS THROMBOSIS
     Route: 058
     Dates: start: 20080206

REACTIONS (2)
  - HOLOPROSENCEPHALY [None]
  - TRISOMY 13 [None]
